FAERS Safety Report 21338762 (Version 2)
Quarter: 2023Q1

REPORT INFORMATION
  Report Type: Spontaneous
  Country: US (occurrence: US)
  Receive Date: 20220915
  Receipt Date: 20230110
  Transmission Date: 20230417
  Serious: No
  Sender: FDA-Public Use
  Company Number: US-MYLANLABS-2022M1092725

PATIENT
  Sex: Female
  Weight: 56.69 kg

DRUGS (2)
  1. CYCLOSPORINE [Suspect]
     Active Substance: CYCLOSPORINE
     Indication: Dry eye
     Dosage: 0.05 PERCENT
     Route: 047
  2. CYCLOSPORINE [Suspect]
     Active Substance: CYCLOSPORINE
     Dosage: UNK (2X DAILY BOTH EYES)
     Route: 047

REACTIONS (4)
  - Eye disorder [Unknown]
  - Eye irritation [Unknown]
  - Ocular hyperaemia [Unknown]
  - Drug ineffective [Unknown]
